FAERS Safety Report 17811524 (Version 1)
Quarter: 2020Q2

REPORT INFORMATION
  Report Type: Spontaneous
  Country: US (occurrence: US)
  Receive Date: 20200521
  Receipt Date: 20200521
  Transmission Date: 20200714
  Serious: No
  Sender: FDA-Public Use
  Company Number: US-PFIZER INC-2020201323

PATIENT
  Age: 76 Year
  Sex: Male
  Weight: 94.35 kg

DRUGS (3)
  1. INLYTA [Suspect]
     Active Substance: AXITINIB
     Indication: RENAL CANCER
     Dosage: UNK
  2. INLYTA [Suspect]
     Active Substance: AXITINIB
     Dosage: 5 MG, 2X/DAY (TWICE A DAY ONE TABLET)
  3. INLYTA [Suspect]
     Active Substance: AXITINIB
     Dosage: 3 MG, 2X/DAY (3 MG, THREE 1MG TABLETS TWICE A DAY.)
     Dates: start: 20200519

REACTIONS (2)
  - Hepatic enzyme abnormal [Recovering/Resolving]
  - Neoplasm progression [Unknown]
